FAERS Safety Report 8951171 (Version 2)
Quarter: 2013Q2

REPORT INFORMATION
  Report Type: Spontaneous
  Country: IT (occurrence: IT)
  Receive Date: 20121207
  Receipt Date: 20130516
  Transmission Date: 20140414
  Serious: Yes (Other)
  Sender: FDA-Public Use
  Company Number: IT-PFIZER INC-2012307353

PATIENT
  Age: 32 Year
  Sex: Female

DRUGS (5)
  1. FARMORUBICINA [Suspect]
     Indication: BREAST CANCER
     Dosage: 127.5 MG, CYCLIC
     Route: 042
     Dates: start: 20121121, end: 20121121
  2. TAXOTERE [Suspect]
     Indication: BREAST CANCER
     Dosage: 127.5 MG, CYCLIC
     Route: 042
     Dates: start: 20121121, end: 20121121
  3. ENDOXAN-BAXTER [Suspect]
     Indication: BREAST CANCER
     Dosage: 850 MG, CYCLIC
     Route: 042
     Dates: start: 20121121, end: 20121121
  4. ONDANSETRON [Concomitant]
     Indication: BREAST CANCER
     Dosage: 8 MG, UNK
     Route: 042
     Dates: start: 20121121, end: 20121121
  5. SOLDESAM [Concomitant]
     Indication: BREAST CANCER
     Dosage: 8 MG, UNK
     Route: 042
     Dates: start: 20121121, end: 20121121

REACTIONS (3)
  - Dyspnoea [Recovering/Resolving]
  - Erythema [Recovering/Resolving]
  - Tachycardia [Recovering/Resolving]
